FAERS Safety Report 8749995 (Version 2)
Quarter: 2012Q4

REPORT INFORMATION
  Report Type: Spontaneous
  Country: US (occurrence: None)
  Receive Date: 20120808
  Receipt Date: 20120816
  Transmission Date: 20130627
  Serious: Yes (Hospitalization, Other)
  Sender: FDA-Public Use
  Company Number: DSA_55304_2012

PATIENT
  Age: 20 Year
  Sex: Male
  Weight: 78.5 kg

DRUGS (1)
  1. BENZACLIN [Suspect]
     Indication: ACNE
     Dosage: DF
     Dates: start: 200701

REACTIONS (20)
  - Colitis ulcerative [None]
  - Large intestinal ulcer [None]
  - Odynophagia [None]
  - Cough [None]
  - Hyperhidrosis [None]
  - Oesophageal ulcer [None]
  - Leukocytosis [None]
  - Abdominal hernia [None]
  - Gastrointestinal haemorrhage [None]
  - Loss of consciousness [None]
  - Oedema peripheral [None]
  - Small intestinal obstruction [None]
  - Heart rate increased [None]
  - Volvulus of small bowel [None]
  - Anaemia [None]
  - Night sweats [None]
  - Post procedural complication [None]
  - Syncope [None]
  - Ileitis [None]
  - Dehydration [None]
